FAERS Safety Report 19741662 (Version 2)
Quarter: 2021Q3

REPORT INFORMATION
  Report Type: Spontaneous
  Country: GB (occurrence: GB)
  Receive Date: 20210825
  Receipt Date: 20210904
  Transmission Date: 20211014
  Serious: Yes (Other)
  Sender: FDA-Public Use
  Company Number: GB-SUN PHARMACEUTICAL INDUSTRIES LTD-2021RR-309041

PATIENT
  Sex: Male

DRUGS (6)
  1. BETMIGA [Suspect]
     Active Substance: MIRABEGRON
     Indication: BLADDER DISORDER
     Dosage: UNK
     Route: 065
     Dates: start: 20200304
  2. VASRAN XL [Concomitant]
     Indication: BLADDER DISORDER
     Dosage: UNK
     Route: 065
     Dates: start: 20190329
  3. BETMIGA [Suspect]
     Active Substance: MIRABEGRON
     Indication: PROSTATIC DISORDER
     Dosage: UNK
     Route: 065
  4. TAMSULOSIN [Suspect]
     Active Substance: TAMSULOSIN
     Indication: PROSTATIC DISORDER
     Dosage: UNK
     Route: 065
     Dates: start: 20180301
  5. VASRAN XL [Concomitant]
     Indication: PROSTATIC DISORDER
     Dosage: UNK
     Route: 065
  6. TAMSULOSIN [Suspect]
     Active Substance: TAMSULOSIN
     Indication: BLADDER DISORDER
     Dosage: UNK
     Route: 065

REACTIONS (6)
  - Gait disturbance [Unknown]
  - Nocturia [Unknown]
  - Drug ineffective [Unknown]
  - Fatigue [Unknown]
  - Lethargy [Unknown]
  - Product use in unapproved indication [Unknown]

NARRATIVE: CASE EVENT DATE: 20200304
